FAERS Safety Report 5337653-X (Version None)
Quarter: 2007Q2

REPORT INFORMATION
  Report Type: 
  Country: None (occurrence: None)
  Receive Date: 20070529
  Receipt Date: 20070521
  Transmission Date: 20071010
  Serious: Yes (Death, Life-Threatening, Hospitalization)
  Sender: FDA-Public Use
  Company Number: DE-ABBOTT-06P-062-0321471-00

PATIENT
  Sex: Female

DRUGS (11)
  1. HUMIRA [Suspect]
     Indication: RHEUMATOID ARTHRITIS
     Route: 058
     Dates: start: 20051101, end: 20051201
  2. HUMIRA [Suspect]
     Route: 058
     Dates: start: 20050501, end: 20050901
  3. BISOPROLOL FUMARATE [Concomitant]
     Indication: DRUG USE FOR UNKNOWN INDICATION
     Dates: start: 20060607
  4. PANTOPRAZOLE SODIUM [Concomitant]
     Indication: DRUG USE FOR UNKNOWN INDICATION
     Dates: start: 20060607
  5. VALORON RETARD [Concomitant]
     Indication: DRUG USE FOR UNKNOWN INDICATION
     Dates: start: 20060607
  6. CALCILAC [Concomitant]
     Indication: DRUG USE FOR UNKNOWN INDICATION
     Dates: start: 20060607
  7. TORSEMIDE [Concomitant]
     Indication: DRUG USE FOR UNKNOWN INDICATION
     Dates: start: 20060607
  8. PREDNISOLONE [Concomitant]
     Indication: DRUG USE FOR UNKNOWN INDICATION
     Dosage: TO BE FURTHER REDUCED
     Dates: start: 20060607
  9. KALINOR FIZZY TABLETS [Concomitant]
     Indication: DRUG USE FOR UNKNOWN INDICATION
     Dates: start: 20060607
  10. ACETYLSALICYLIC ACID SRT [Concomitant]
     Indication: DRUG USE FOR UNKNOWN INDICATION
     Dates: start: 20060607
  11. METHOTREXATE SODIUM [Concomitant]
     Indication: DRUG USE FOR UNKNOWN INDICATION
     Route: 048

REACTIONS (16)
  - DEATH [None]
  - EMPHYSEMA [None]
  - GASTRIC ULCER [None]
  - GASTRITIS ATROPHIC [None]
  - GASTRITIS FUNGAL [None]
  - HAEMATOCHEZIA [None]
  - ILEUS [None]
  - INTERSTITIAL LUNG DISEASE [None]
  - LUNG DISORDER [None]
  - LUNG INFILTRATION [None]
  - METAPLASIA [None]
  - OESOPHAGEAL CANDIDIASIS [None]
  - OESOPHAGITIS [None]
  - PULMONARY FIBROSIS [None]
  - PULMONARY GRANULOMA [None]
  - RESPIRATORY FAILURE [None]
